FAERS Safety Report 8327732-7 (Version None)
Quarter: 2012Q2

REPORT INFORMATION
  Report Type: 
  Country: None (occurrence: None)
  Receive Date: 20120502
  Receipt Date: 20120430
  Transmission Date: 20120825
  Serious: Yes (Death)
  Sender: FDA-Public Use
  Company Number: US-PFIZER INC-2012089099

PATIENT
  Sex: Male

DRUGS (11)
  1. OXYCONTIN [Concomitant]
     Dosage: 20 MG, 2X/DAY
  2. ATIVAN [Concomitant]
     Dosage: 0.5 MG, EVERY 6 HOURS, AS NEEDED
  3. VITAMIN C [Concomitant]
     Dosage: 2000 MG, 1X/DAY
  4. CALTRATE 600+D [Concomitant]
     Dosage: UNK, 1X/DAY
  5. SUTENT [Suspect]
     Indication: RENAL CANCER
     Dosage: 50 MG, 1X/DAY
     Route: 048
     Dates: start: 20120305, end: 20120312
  6. ATENOLOL [Concomitant]
     Dosage: 50 MG, 1X/DAY
  7. PERCOCET [Concomitant]
     Dosage: 5/325, 1-2 EVERY 4HRS, AS NEEDED
  8. SUTENT [Suspect]
     Indication: RENAL CELL CARCINOMA
  9. LISINOPRIL [Concomitant]
     Dosage: 10 MG, 1X/DAY
  10. TAGAMET [Concomitant]
     Dosage: 800 MG, 2X/DAY
  11. MELATONIN [Concomitant]
     Dosage: 3 MG, EVERY HS

REACTIONS (2)
  - DISEASE PROGRESSION [None]
  - RENAL CANCER [None]
